FAERS Safety Report 21560071 (Version 1)
Quarter: 2022Q4

REPORT INFORMATION
  Report Type: Spontaneous
  Country: JP (occurrence: JP)
  Receive Date: 20221107
  Receipt Date: 20221107
  Transmission Date: 20230112
  Serious: Yes (Life-Threatening, Hospitalization, Other)
  Sender: FDA-Public Use
  Company Number: JP-BRISTOL-MYERS SQUIBB COMPANY-2022-132027

PATIENT
  Age: 57 Year
  Sex: Male
  Weight: 67 kg

DRUGS (3)
  1. DASATINIB [Suspect]
     Active Substance: DASATINIB
     Indication: Chronic myeloid leukaemia
     Dosage: DASATINIB 100 MG ONCE A DAY
     Route: 065
  2. SUGAMMADEX [Concomitant]
     Active Substance: SUGAMMADEX
     Indication: Muscle twitching
  3. DESFLURANE [Concomitant]
     Active Substance: DESFLURANE
     Indication: Anaesthesia

REACTIONS (1)
  - Pleural effusion [Not Recovered/Not Resolved]
